FAERS Safety Report 6146805-0 (Version None)
Quarter: 2009Q2

REPORT INFORMATION
  Report Type: 
  Country: None (occurrence: None)
  Receive Date: 20090403
  Receipt Date: 20090403
  Transmission Date: 20091009
  Serious: No
  Sender: FDA-Public Use
  Company Number: None

PATIENT
  Sex: Male
  Weight: 8 kg

DRUGS (5)
  1. METHOTREXATE [Suspect]
     Dosage: 3.04 MG
  2. VINCRISTINE SULFATE [Suspect]
     Dosage: 1.52 MG
  3. CISPLATIN [Suspect]
     Dosage: 26.6 MG
  4. CYCLOPHOSPHAMIDE [Suspect]
     Dosage: 90 MG
  5. ETOPOSIDE [Suspect]
     Dosage: 57 MG

REACTIONS (1)
  - CONVULSION [None]
